FAERS Safety Report 6735668-8 (Version None)
Quarter: 2010Q2

REPORT INFORMATION
  Report Type: 
  Country: None (occurrence: None)
  Receive Date: 20100521
  Receipt Date: 20100512
  Transmission Date: 20101027
  Serious: Yes (Other)
  Sender: FDA-Public Use
  Company Number: US-JNJFOC-20100506079

PATIENT
  Sex: Male
  Weight: 108.86 kg

DRUGS (11)
  1. REMICADE [Suspect]
     Indication: CROHN'S DISEASE
     Route: 042
     Dates: start: 20091101
  2. REMICADE [Suspect]
     Route: 042
     Dates: start: 20091101
  3. LOTENSIN [Concomitant]
     Indication: HYPERTENSION
  4. HUMALOG [Concomitant]
     Indication: DIABETES MELLITUS
  5. SULFASALAZINE [Concomitant]
     Indication: CROHN'S DISEASE
  6. SYNTHROID [Concomitant]
     Indication: THYROID DISORDER
  7. COUMADIN [Concomitant]
  8. MORPHINE [Concomitant]
     Indication: PAIN
  9. NEXIUM [Concomitant]
     Indication: GASTROOESOPHAGEAL REFLUX DISEASE
  10. LASIX [Concomitant]
     Indication: CARDIAC DISORDER
  11. REGLAN [Concomitant]
     Indication: ABDOMINAL PAIN UPPER

REACTIONS (3)
  - CHEST PAIN [None]
  - DYSPNOEA [None]
  - PALPITATIONS [None]
